FAERS Safety Report 24427080 (Version 6)
Quarter: 2025Q1

REPORT INFORMATION
  Report Type: Spontaneous
  Country: US (occurrence: None)
  Receive Date: 20241011
  Receipt Date: 20250328
  Transmission Date: 20250409
  Serious: Yes (Hospitalization, Other)
  Sender: INCYTE
  Company Number: US-INCYTE CORPORATION-2024IN010832

PATIENT
  Age: 23 Year
  Weight: 51.5 kg

DRUGS (53)
  1. JAKAFI [Suspect]
     Active Substance: RUXOLITINIB
     Indication: Chronic graft versus host disease
     Dosage: 15 MILLIGRAM, BID
  2. JAKAFI [Suspect]
     Active Substance: RUXOLITINIB
     Dosage: 15 MILLIGRAM, BID (TAKE ONE 5MG WITH ONE 10MG  (TOTAL 15MG PER DOSE) TAKE AT ABOUT THE SAME TIME EACH DAY WITH OR WITHOUT FOOD)
     Route: 065
  3. AXATILIMAB [Suspect]
     Active Substance: AXATILIMAB
     Indication: Graft versus host disease
  4. AXATILIMAB [Suspect]
     Active Substance: AXATILIMAB
  5. AXATILIMAB [Suspect]
     Active Substance: AXATILIMAB
  6. REZUROCK [Concomitant]
     Active Substance: BELUMOSUDIL
     Indication: Chronic graft versus host disease
     Dosage: 200 MILLIGRAM, BID (WITH PPI)
  7. ABATACEPT [Concomitant]
     Active Substance: ABATACEPT
     Indication: Chronic graft versus host disease
     Dosage: UNK, MONTHLY
     Route: 065
  8. ACYCLOVIR [Concomitant]
     Active Substance: ACYCLOVIR
     Indication: Product used for unknown indication
     Dosage: 400 MG 2 TIMES DAILY, START AFTER FINISHING VALTREX DOSE
  9. ATOVAQUONE [Concomitant]
     Active Substance: ATOVAQUONE
     Indication: Product used for unknown indication
     Dosage: 750 MILLIGRAM, Q12H
  10. AZITHROMYCIN [Concomitant]
     Active Substance: AZITHROMYCIN
     Indication: Product used for unknown indication
     Dosage: 250 MILLIGRAM, ONCE PER DAY ON MON WED FRI
  11. BUDESONIDE [Concomitant]
     Active Substance: BUDESONIDE
     Indication: Product used for unknown indication
     Dosage: 0.5 MILLIGRAM, BID (RINSE MOUTH WITH WATER AFTER USE TO REDUCE AFTERTASTE AND INCIDENCE OF CANDIDIASIS. DO NOT SWALLOW)
  12. BUDESONIDE\FORMOTEROL [Concomitant]
     Active Substance: BUDESONIDE\FORMOTEROL
     Indication: Product used for unknown indication
     Dosage: 2 PUFFS, BID (RINSE MOUTH WITH WATER AFTER USE TO REDUCE AFTERTASTE AND INCIDENCE OF CANDIDIASIS. DO NOT SWALLOW)
  13. CYCLOSPORINE [Concomitant]
     Active Substance: CYCLOSPORINE
     Indication: Product used for unknown indication
     Dosage: 1 DROP, BOTH EYES BID
  14. DEXAMETHASONE [Concomitant]
     Active Substance: DEXAMETHASONE
     Indication: Product used for unknown indication
     Dosage: 0.5 MILLIGRAM, QID (SWISH AND SPIT)
  15. ALBUTEROL SULFATE [Concomitant]
     Active Substance: ALBUTEROL SULFATE
     Indication: Product used for unknown indication
  16. VITAMIN B COMPLEX [Concomitant]
     Active Substance: CYANOCOBALAMIN\DEXPANTHENOL\NIACINAMIDE\PYRIDOXINE HYDROCHLORIDE\RIBOFLAVIN 5^-PHOSPHATE SODIUM\THIA
     Indication: Product used for unknown indication
     Dosage: 1 DOSAGE FORM, QD
  17. BELUMOSUDIL MESYLATE [Concomitant]
     Active Substance: BELUMOSUDIL MESYLATE
     Indication: Product used for unknown indication
     Dosage: 200 MILLIGRAM, QD (TAKE WITH A MEAL. SWALLOW WHOLE. DO NOT CUT, CRUSH OR CHEW)
  18. BENZOCAINE-MENTHOL [Concomitant]
     Indication: Product used for unknown indication
     Dosage: 1 DOSAGE FORM, QID PRN
  19. CARBOXYMETHYLCELLULOSE SODIUM [Concomitant]
     Active Substance: CARBOXYMETHYLCELLULOSE SODIUM
     Indication: Product used for unknown indication
  20. CHLORHEXIDINE GLUCONATE [Concomitant]
     Active Substance: CHLORHEXIDINE GLUCONATE
     Indication: Product used for unknown indication
     Route: 065
  21. CHOLECALCIFEROL [Concomitant]
     Active Substance: CHOLECALCIFEROL
     Indication: Product used for unknown indication
     Dosage: 1.25 MILLIGRAM, WEEKLY
  22. DEXTROMETHORPHAN\GUAIFENESIN [Concomitant]
     Active Substance: DEXTROMETHORPHAN\GUAIFENESIN
     Indication: Product used for unknown indication
     Dosage: 10-100 MG/ 5 ML 5 ML, Q12H
  23. DIPHENHYDRAMINE HYDROCHLORIDE [Concomitant]
     Active Substance: DIPHENHYDRAMINE HYDROCHLORIDE
     Indication: Product used for unknown indication
     Dosage: 15 MILLILITER SWISH AND SPIT, QID
     Route: 065
  24. ALUMINUM [Concomitant]
     Active Substance: ALUMINUM
     Indication: Product used for unknown indication
     Dosage: 15 MILLILITER SWISH AND SPIT, QID
     Route: 065
  25. MAGNESIUM [Concomitant]
     Active Substance: MAGNESIUM
     Indication: Product used for unknown indication
     Dosage: 15 MILLILITER SWISH AND SPIT, QID
     Route: 065
  26. FAMOTIDINE [Concomitant]
     Active Substance: FAMOTIDINE
     Indication: Product used for unknown indication
     Dosage: 20 MILLIGRAM, QD
  27. FOLIC ACID [Concomitant]
     Active Substance: FOLIC ACID
     Indication: Product used for unknown indication
     Dosage: 1 MILLIGRAM, QD
  28. FORMOTEROL FUMARATE [Concomitant]
     Active Substance: FORMOTEROL FUMARATE
     Indication: Product used for unknown indication
     Dosage: 20 MICROGRAM, BID
  29. LEFLUNOMIDE [Concomitant]
     Active Substance: LEFLUNOMIDE
     Indication: Chronic graft versus host disease
     Dosage: 20 MILLIGRAM, QD
  30. LETERMOVIR [Concomitant]
     Active Substance: LETERMOVIR
     Indication: Product used for unknown indication
     Dosage: 480 MILLIGRAM, QD
  31. LOTEPREDNOL ETABONATE [Concomitant]
     Active Substance: LOTEPREDNOL ETABONATE
     Indication: Product used for unknown indication
     Route: 065
  32. MEDROXYPROGESTERONE ACETATE [Concomitant]
     Active Substance: MEDROXYPROGESTERONE ACETATE
     Indication: Product used for unknown indication
     Dosage: 5 MILLIGRAM, QD
  33. MELATONIN [Concomitant]
     Active Substance: MELATONIN
     Indication: Product used for unknown indication
     Dosage: 10 MILLIGRAM NIGHTLY, PRN
  34. METOPROLOL TARTRATE [Concomitant]
     Active Substance: METOPROLOL TARTRATE
     Indication: Product used for unknown indication
     Dosage: 50 MILLIGRAM, BID
  35. MONTELUKAST SODIUM [Concomitant]
     Active Substance: MONTELUKAST SODIUM
     Indication: Product used for unknown indication
     Dosage: 10 MILLIGRAM, QHS
  36. NALOXONE HCL [Concomitant]
     Active Substance: NALOXONE HYDROCHLORIDE
     Indication: Overdose
  37. ONDANSETRON HYDROCHLORIDE [Concomitant]
     Active Substance: ONDANSETRON HYDROCHLORIDE
     Indication: Product used for unknown indication
     Dosage: 8 MILLIGRAM EVERY 8 HOURS, PRN
  38. PANTOPRAZOLE [Concomitant]
     Active Substance: PANTOPRAZOLE
     Indication: Product used for unknown indication
     Dosage: 40 MILLIGRAM, QD
  39. PANTOPRAZOLE [Concomitant]
     Active Substance: PANTOPRAZOLE
     Dosage: 40 MILLIGRAM, QD
  40. PIRFENIDONE [Concomitant]
     Active Substance: PIRFENIDONE
     Indication: Product used for unknown indication
     Dosage: 801 MILLIGRAM, TID
  41. POSACONAZOLE [Concomitant]
     Active Substance: POSACONAZOLE
     Indication: Product used for unknown indication
     Dosage: 300 MILLIGRAM, QD/MEAL (DO NOT CRUSH, CHEW, OR SPLIT; SWALLOW WHOLE)
  42. POTASSIUM CHLORIDE [Concomitant]
     Active Substance: POTASSIUM CHLORIDE
     Indication: Product used for unknown indication
     Dosage: 10 MEQ 30 MEQ, BID (DO NOT CRUSH OR CHEW)
  43. PREDNISONE [Concomitant]
     Active Substance: PREDNISONE
     Indication: Chronic graft versus host disease
     Dosage: 10 MILLIGRAM, QD
  44. PREDNISONE [Concomitant]
     Active Substance: PREDNISONE
  45. DOCUSATE SODIUM\SENNOSIDES A AND B [Concomitant]
     Active Substance: DOCUSATE SODIUM\SENNOSIDES A AND B
     Indication: Product used for unknown indication
     Dosage: 1 DOSAGE FORM, BID PRN
  46. SIROLIMUS [Concomitant]
     Active Substance: SIROLIMUS
     Indication: Chronic graft versus host disease
  47. PREVIDENT [Concomitant]
     Active Substance: SODIUM FLUORIDE
     Indication: Product used for unknown indication
     Dosage: 1.1 PERCENT, BID
     Route: 065
  48. SULFAMETHOXAZOLE\TRIMETHOPRIM [Concomitant]
     Active Substance: SULFAMETHOXAZOLE\TRIMETHOPRIM
     Indication: Product used for unknown indication
     Dosage: 1 DOSAGE FORM, 3X/WEEK
  49. TACROLIMUS [Concomitant]
     Active Substance: TACROLIMUS
     Indication: Chronic graft versus host disease
     Dosage: 1 MILLIGRAM, BID (LEVEL {2)
  50. TACROLIMUS [Concomitant]
     Active Substance: TACROLIMUS
     Dosage: 1 MILLIGRAM, BID (LEVEL {2)
  51. TACROLIMUS [Concomitant]
     Active Substance: TACROLIMUS
     Dosage: 1 MILLIGRAM, BID
  52. TRIAMCINOLONE ACETONIDE [Concomitant]
     Active Substance: TRIAMCINOLONE ACETONIDE
     Indication: Product used for unknown indication
     Dosage: 0.1 % 1 APPLICATION 2 TIMES DAILY
  53. URSODIOL [Concomitant]
     Active Substance: URSODIOL
     Indication: Product used for unknown indication
     Dosage: 300 MILLIGRAM, BID

REACTIONS (13)
  - Bronchiolitis [Recovered/Resolved]
  - Hypoxia [Not Recovered/Not Resolved]
  - Immunodeficiency [Unknown]
  - Immunosuppression [Unknown]
  - Chronic graft versus host disease in lung [Unknown]
  - Acute myeloid leukaemia [Unknown]
  - Bronchopulmonary aspergillosis [Unknown]
  - Parainfluenzae virus infection [Recovered/Resolved]
  - Pneumonia [Unknown]
  - Cholelithiasis [Unknown]
  - Hepatic steatosis [Unknown]
  - Lung opacity [Unknown]
  - Anaemia [Unknown]
